FAERS Safety Report 23942646 (Version 1)
Quarter: 2024Q2

REPORT INFORMATION
  Report Type: Spontaneous
  Country: US (occurrence: US)
  Receive Date: 20240605
  Receipt Date: 20240605
  Transmission Date: 20240716
  Serious: No
  Sender: FDA-Public Use
  Company Number: US-SERB S.A.S.-2157809

PATIENT
  Age: 74 Year
  Sex: Male

DRUGS (6)
  1. VORAXAZE [Suspect]
     Active Substance: GLUCARPIDASE
     Indication: Toxicity to various agents
     Route: 065
  2. METHOTREXATE [Concomitant]
     Active Substance: METHOTREXATE
     Route: 065
  3. leucovorin (LEVOLEUCOVORIN) [Concomitant]
     Route: 065
  4. PROCARBAZINE [Concomitant]
     Active Substance: PROCARBAZINE
     Route: 065
  5. VINCRISTINE [Concomitant]
     Active Substance: VINCRISTINE
     Route: 065
  6. RITUXIMAB [Concomitant]
     Active Substance: RITUXIMAB
     Route: 065

REACTIONS (2)
  - Laboratory test interference [Unknown]
  - False positive investigation result [Unknown]
